FAERS Safety Report 7122809-6 (Version None)
Quarter: 2010Q4

REPORT INFORMATION
  Report Type: 
  Country: None (occurrence: None)
  Receive Date: 20101124
  Receipt Date: 20101116
  Transmission Date: 20110411
  Serious: Yes (Hospitalization, Disabling, Other)
  Sender: FDA-Public Use
  Company Number: CH-ABBOTT-10P-151-0684698-00

PATIENT
  Sex: Male
  Weight: 90 kg

DRUGS (7)
  1. HUMIRA [Suspect]
     Indication: CROHN'S DISEASE
     Route: 050
     Dates: start: 20081201, end: 20100101
  2. HUMIRA [Suspect]
     Route: 050
     Dates: start: 20100215, end: 20100901
  3. METHOTREXATE [Concomitant]
     Indication: CROHN'S DISEASE
  4. TRAMADOL HCL [Concomitant]
     Indication: PAIN
  5. MALTOFER [Concomitant]
     Indication: PRODUCT USED FOR UNKNOWN INDICATION
  6. PANTOPRAZOLE SODIUM [Concomitant]
     Indication: PRODUCT USED FOR UNKNOWN INDICATION
     Dosage: 1 - 2 TIMES PER DAY
  7. STILNOX [Concomitant]
     Indication: PRODUCT USED FOR UNKNOWN INDICATION

REACTIONS (9)
  - ARTHRALGIA [None]
  - DEPRESSION [None]
  - FOLLICULITIS [None]
  - FURUNCLE [None]
  - HEADACHE [None]
  - IMPETIGO [None]
  - PSORIASIS [None]
  - SCAR [None]
  - SUPERINFECTION [None]
